FAERS Safety Report 22323793 (Version 2)
Quarter: 2023Q2

REPORT INFORMATION
  Report Type: Spontaneous
  Country: CO (occurrence: CO)
  Receive Date: 20230516
  Receipt Date: 20230531
  Transmission Date: 20230722
  Serious: Yes (Other)
  Sender: FDA-Public Use
  Company Number: CO-BAYER-2023A066931

PATIENT
  Sex: Male

DRUGS (1)
  1. EYLEA [Suspect]
     Active Substance: AFLIBERCEPT
     Indication: Age-related macular degeneration
     Dosage: HAD RECEIVED 5 PREVIOUS AFLIBERCEPT INJECTIONS WITHOUT COMPLICATIONS (SOL FOR INJ, 40 MG/ML)
     Dates: start: 20230503

REACTIONS (6)
  - Vitreous abscess [Unknown]
  - Endophthalmitis [Unknown]
  - Eye inflammation [Unknown]
  - Visual impairment [Recovering/Resolving]
  - Eye pain [Unknown]
  - Vitreous floaters [Unknown]

NARRATIVE: CASE EVENT DATE: 20230506
